FAERS Safety Report 14496735 (Version 2)
Quarter: 2018Q1

REPORT INFORMATION
  Report Type: Spontaneous
  Country: FI (occurrence: FI)
  Receive Date: 20180207
  Receipt Date: 20180319
  Transmission Date: 20180509
  Serious: Yes (Hospitalization, Disabling, Other)
  Sender: FDA-Public Use
  Company Number: FI-ASTELLAS-2018US006365

PATIENT
  Age: 63 Year
  Sex: Female
  Weight: 65 kg

DRUGS (2)
  1. BETMIGA [Suspect]
     Active Substance: MIRABEGRON
     Indication: POLYURIA
     Route: 048
     Dates: start: 20171218
  2. BETMIGA [Suspect]
     Active Substance: MIRABEGRON
     Indication: URGE INCONTINENCE

REACTIONS (7)
  - Carotid artery aneurysm [Unknown]
  - Hyponatraemia [Unknown]
  - Hemiplegia [Unknown]
  - Embolism [Unknown]
  - Cerebral infarction [Recovering/Resolving]
  - Cerebrovascular disorder [Not Recovered/Not Resolved]
  - Malaise [Unknown]

NARRATIVE: CASE EVENT DATE: 20180112
